FAERS Safety Report 8350284-2 (Version None)
Quarter: 2012Q2

REPORT INFORMATION
  Report Type: 
  Country: None (occurrence: None)
  Receive Date: 20120510
  Receipt Date: 20120507
  Transmission Date: 20120825
  Serious: Yes (Other)
  Sender: FDA-Public Use
  Company Number: ZA-PFIZER INC-2012111491

PATIENT
  Age: 64 Year
  Sex: Male

DRUGS (2)
  1. WARFARIN [Concomitant]
  2. CELEBREX [Suspect]
     Indication: BACK PAIN
     Dosage: UNK
     Route: 048

REACTIONS (2)
  - HAEMORRHAGE SUBCUTANEOUS [None]
  - OEDEMA PERIPHERAL [None]
